FAERS Safety Report 18391965 (Version 1)
Quarter: 2020Q4

REPORT INFORMATION
  Report Type: Spontaneous
  Country: US (occurrence: US)
  Receive Date: 20201016
  Receipt Date: 20201016
  Transmission Date: 20210114
  Serious: Yes (Hospitalization)
  Sender: FDA-Public Use
  Company Number: US-MYLANLABS-2020M1086905

PATIENT
  Age: 61 Year
  Sex: Male

DRUGS (13)
  1. LORAZEPAM. [Suspect]
     Active Substance: LORAZEPAM
     Indication: STATUS EPILEPTICUS
     Route: 065
  2. KETAMINE [Suspect]
     Active Substance: KETAMINE
     Indication: EPILEPSY
     Dosage: UNK
  3. LACOSAMIDE. [Suspect]
     Active Substance: LACOSAMIDE
     Indication: STATUS EPILEPTICUS
     Dosage: UNK
     Route: 065
  4. PROPOFOL. [Suspect]
     Active Substance: PROPOFOL
     Indication: STATUS EPILEPTICUS
     Dosage: SEDATIVE INFUSION
  5. KETAMINE [Suspect]
     Active Substance: KETAMINE
     Dosage: 7.2 MILLIGRAM/KILOGRAM, QH, DOSE OF KETAMINE WAS INCREASED...
  6. VALPROIC ACID. [Suspect]
     Active Substance: VALPROIC ACID
     Indication: STATUS EPILEPTICUS
     Route: 065
  7. MIDAZOLAM. [Suspect]
     Active Substance: MIDAZOLAM
     Indication: STATUS EPILEPTICUS
     Dosage: SEDATIVE INFUSION
  8. BRIVARACETAM [Suspect]
     Active Substance: BRIVARACETAM
     Indication: STATUS EPILEPTICUS
     Dosage: UNK
     Route: 065
  9. PHENOBARBITAL. [Suspect]
     Active Substance: PHENOBARBITAL
     Indication: STATUS EPILEPTICUS
     Route: 065
  10. PHENYTOIN. [Suspect]
     Active Substance: PHENYTOIN
     Indication: STATUS EPILEPTICUS
     Dosage: UNK
     Route: 065
  11. PENTOBARBITAL. [Suspect]
     Active Substance: PENTOBARBITAL
     Indication: EPILEPSY
  12. LEVETIRACETAM. [Suspect]
     Active Substance: LEVETIRACETAM
     Indication: STATUS EPILEPTICUS
     Route: 065
  13. PERAMPANEL [Suspect]
     Active Substance: PERAMPANEL
     Indication: STATUS EPILEPTICUS
     Route: 065

REACTIONS (5)
  - Fluid overload [Unknown]
  - Drug ineffective [Unknown]
  - Metabolic acidosis [Unknown]
  - Off label use [Unknown]
  - Hepatorenal failure [Unknown]
